FAERS Safety Report 9282653 (Version 1)
Quarter: 2013Q2

REPORT INFORMATION
  Report Type: Spontaneous
  Country: AT (occurrence: AT)
  Receive Date: 20130510
  Receipt Date: 20130510
  Transmission Date: 20140414
  Serious: Yes (Other)
  Sender: FDA-Public Use
  Company Number: PHHY2013AT045867

PATIENT
  Sex: Female

DRUGS (3)
  1. SANDIMMUN NEORAL [Suspect]
     Indication: IMMUNOSUPPRESSION
     Dosage: UNK UKN, UNK
     Route: 048
     Dates: start: 20130306, end: 20130403
  2. CELLCEPT [Concomitant]
     Indication: IMMUNOSUPPRESSION
     Dosage: UNK UKN, UNK
     Dates: start: 20130306
  3. CORTISONE [Concomitant]
     Indication: IMMUNOSUPPRESSION
     Dosage: UNK UKN, UNK
     Dates: start: 20130306

REACTIONS (2)
  - Polyneuropathy [Not Recovered/Not Resolved]
  - Paraesthesia [Not Recovered/Not Resolved]
